FAERS Safety Report 24918813 (Version 1)
Quarter: 2025Q1

REPORT INFORMATION
  Report Type: Spontaneous
  Country: NL (occurrence: NL)
  Receive Date: 20250204
  Receipt Date: 20250204
  Transmission Date: 20250408
  Serious: Yes (Other)
  Sender: Haleon PLC
  Company Number: None

PATIENT
  Age: 55 Year
  Sex: Male
  Weight: 75 kg

DRUGS (1)
  1. FLUTICASONE [Suspect]
     Active Substance: FLUTICASONE
     Indication: Nasopharyngitis
     Dosage: 1X PER DAY 2 SPRAYS PER NOSTRIL
     Route: 055
     Dates: start: 20250108

REACTIONS (1)
  - Fungal oesophagitis [Recovered/Resolved]
